FAERS Safety Report 11373791 (Version 2)
Quarter: 2015Q3

REPORT INFORMATION
  Report Type: Spontaneous
  Country: US (occurrence: None)
  Receive Date: 20150811
  Receipt Date: 20150824
  Transmission Date: 20151125
  Serious: No
  Sender: FDA-Public Use
  Company Number: 2015SMT00234

PATIENT
  Age: 46 Year
  Sex: Male
  Weight: 104.3 kg

DRUGS (3)
  1. VITAMINS (UNSPECIFIED) (DIETARY SUPPLEMENT) [Concomitant]
  2. PILL FOR HIGH BLOOD PRESSURE (UNSPECIFIED) (PILL FOR HIGH BLOOD PRESSURE (UNSPECIFIED)) [Concomitant]
  3. REGRANEX [Suspect]
     Active Substance: BECAPLERMIN
     Indication: WOUND
     Dosage: 2X/DAY, TOPICAL
     Route: 061
     Dates: start: 201507, end: 201507

REACTIONS (6)
  - Off label use [None]
  - Drug ineffective [None]
  - Osteomyelitis [None]
  - Wound complication [None]
  - Impaired healing [None]
  - Inappropriate schedule of drug administration [None]

NARRATIVE: CASE EVENT DATE: 201507
